FAERS Safety Report 6052153-X (Version None)
Quarter: 2009Q1

REPORT INFORMATION
  Report Type: 
  Country: None (occurrence: None)
  Receive Date: 20090126
  Receipt Date: 20090114
  Transmission Date: 20090719
  Serious: Yes (Hospitalization, Other)
  Sender: FDA-Public Use
  Company Number: US-ELI_LILLY_AND_COMPANY-US200901002304

PATIENT
  Sex: Female

DRUGS (17)
  1. CYMBALTA [Suspect]
     Indication: DEPRESSION
     Dosage: 30 MG, 3/D
     Route: 048
     Dates: start: 20060101
  2. ZYRTEC-D 12 HOUR [Concomitant]
  3. LOMOTIL [Concomitant]
  4. LAMICTAL [Concomitant]
  5. FIORICET [Concomitant]
  6. AMITRIPTYLINUM [Concomitant]
  7. CLONAZEPAM [Concomitant]
  8. INDERAL [Concomitant]
  9. PHENERGAN HCL [Concomitant]
  10. MIDRIN [Concomitant]
  11. SEROQUEL [Concomitant]
  12. LIBRAX [Concomitant]
  13. ZANTAC [Concomitant]
  14. HYDROCODONE BITARTRATE [Concomitant]
  15. DEPO-PROVERA [Concomitant]
     Indication: CONTRACEPTION
  16. LUNESTA [Concomitant]
  17. IBUPROFEN TABLETS [Concomitant]

REACTIONS (9)
  - BENIGN INTRACRANIAL HYPERTENSION [None]
  - DIZZINESS [None]
  - EPISTAXIS [None]
  - FALL [None]
  - GAMMA-GLUTAMYLTRANSFERASE INCREASED [None]
  - LOSS OF CONSCIOUSNESS [None]
  - PAROSMIA [None]
  - TONSILLECTOMY [None]
  - TOOTH FRACTURE [None]
